FAERS Safety Report 7873347-4 (Version None)
Quarter: 2011Q4

REPORT INFORMATION
  Report Type: 
  Country: None (occurrence: None)
  Receive Date: 20111030
  Receipt Date: 20110503
  Transmission Date: 20120403
  Serious: No
  Sender: FDA-Public Use
  Company Number: US-AMGEN-USASP2011022885

PATIENT
  Age: 58 Year
  Sex: Female

DRUGS (2)
  1. ENBREL [Suspect]
     Indication: PSORIATIC ARTHROPATHY
     Dosage: 50 MG, QWK
     Dates: start: 20070601
  2. TREXALL [Concomitant]
     Dates: start: 20060101

REACTIONS (8)
  - GASTROENTERITIS VIRAL [None]
  - PAIN IN EXTREMITY [None]
  - PAIN [None]
  - LABORATORY TEST ABNORMAL [None]
  - NASOPHARYNGITIS [None]
  - MUSCULOSKELETAL STIFFNESS [None]
  - ARTHRALGIA [None]
  - JOINT STIFFNESS [None]
